FAERS Safety Report 7541991-X (Version None)
Quarter: 2011Q2

REPORT INFORMATION
  Report Type: 
  Country: None (occurrence: None)
  Receive Date: 20110606
  Receipt Date: 20110523
  Transmission Date: 20111010
  Serious: Yes (Other)
  Sender: FDA-Public Use
  Company Number: JP-ACCORD-009394

PATIENT
  Age: 22 Year
  Sex: Male

DRUGS (1)
  1. TOPIRAMATE [Suspect]
     Indication: CONVULSION

REACTIONS (3)
  - FLANK PAIN [None]
  - CALCULUS URETERIC [None]
  - CONVULSION [None]
